FAERS Safety Report 5575998-9 (Version None)
Quarter: 2007Q4

REPORT INFORMATION
  Report Type: 
  Country: None (occurrence: None)
  Receive Date: 20071228
  Receipt Date: 20071220
  Transmission Date: 20080405
  Serious: Yes (Other)
  Sender: FDA-Public Use
  Company Number: PHHO2007US20947

PATIENT
  Age: 49 Year
  Sex: Male
  Weight: 93.877 kg

DRUGS (10)
  1. ALDESLEUKIN [Suspect]
     Indication: METASTATIC RENAL CELL CARCINOMA
     Dosage: 0.6MU/KG/DOSE Q8 HOURS
     Route: 042
     Dates: start: 20071211, end: 20071214
  2. BEVACIZUMAB [Suspect]
     Indication: METASTATIC RENAL CELL CARCINOMA
     Dosage: 10MG/KG Q2WKS
     Route: 042
  3. MEPERIDINE [Concomitant]
  4. PEPCID [Concomitant]
  5. INDOCIN [Concomitant]
  6. DILAUDID [Concomitant]
  7. TYLENOL [Concomitant]
  8. LORTAB [Concomitant]
  9. AMBIEN [Concomitant]
  10. COMPAZINE [Concomitant]

REACTIONS (4)
  - APHASIA [None]
  - COGNITIVE DISORDER [None]
  - DYSPHEMIA [None]
  - SPEECH DISORDER [None]
